FAERS Safety Report 8523238-0 (Version None)
Quarter: 2012Q3

REPORT INFORMATION
  Report Type: 
  Country: None (occurrence: None)
  Receive Date: 20120720
  Receipt Date: 20120712
  Transmission Date: 20120928
  Serious: Yes (Hospitalization, Other)
  Sender: FDA-Public Use
  Company Number: US-BAYER-2012-070907

PATIENT
  Age: 24 Year
  Sex: Female
  Weight: 72.58 kg

DRUGS (9)
  1. PROCHLORPERAZINE MALEATE [Concomitant]
     Dosage: UNK
  2. YASMIN [Suspect]
     Dosage: UNK
  3. LEVOTHYROXINE SODIUM [Concomitant]
     Dosage: 125 MCG DAILY
  4. YAZ [Suspect]
     Dosage: UNK
  5. PERCOCET [Concomitant]
     Dosage: UNK
  6. ACETAMINOPHEN AND OXYCODONE HCL [Concomitant]
     Dosage: UNK
  7. ENOXAPARIN [Concomitant]
     Dosage: UNK
  8. IBUPROFEN [Concomitant]
     Dosage: UNK
  9. CODEINE SULFATE [Concomitant]
     Dosage: UNK

REACTIONS (2)
  - PULMONARY EMBOLISM [None]
  - DEEP VEIN THROMBOSIS [None]
